FAERS Safety Report 8240554-0 (Version None)
Quarter: 2012Q1

REPORT INFORMATION
  Report Type: 
  Country: None (occurrence: None)
  Receive Date: 20120328
  Receipt Date: 20120313
  Transmission Date: 20120608
  Serious: Yes (Hospitalization)
  Sender: FDA-Public Use
  Company Number: JP-ROCHE-1049058

PATIENT
  Sex: Female
  Weight: 44 kg

DRUGS (6)
  1. COPEGUS [Suspect]
     Indication: HEPATITIS C
     Route: 048
     Dates: start: 20110706, end: 20110823
  2. DIPHENHYDRAMINE HCL [Concomitant]
     Indication: PRURITUS
     Dates: start: 20110712
  3. COPEGUS [Suspect]
     Route: 048
     Dates: start: 20110824, end: 20110824
  4. PEGINTERFERON ALFA-2A [Suspect]
     Route: 058
     Dates: start: 20110727, end: 20110817
  5. PEGINTERFERON ALFA-2A [Suspect]
     Indication: HEPATITIS C
     Route: 058
     Dates: start: 20110706, end: 20110720
  6. PLACEBO [Suspect]
     Indication: HEPATITIS C

REACTIONS (1)
  - CHOLECYSTITIS [None]
